FAERS Safety Report 9819513 (Version 1)
Quarter: 2014Q1

REPORT INFORMATION
  Report Type: Spontaneous
  Country: BR (occurrence: BR)
  Receive Date: 20140115
  Receipt Date: 20140115
  Transmission Date: 20141002
  Serious: Yes (Other)
  Sender: FDA-Public Use
  Company Number: BR-PFIZER INC-2014010892

PATIENT
  Age: 72 Year
  Sex: Female
  Weight: 70 kg

DRUGS (4)
  1. OLMETEC HCT [Suspect]
     Indication: HYPERTENSION
     Dosage: 20 MG/12.5 MG, 1X/DAY
     Route: 048
     Dates: start: 2010, end: 20140103
  2. NORVASC [Suspect]
     Dosage: UNK
     Route: 048
     Dates: start: 20090414
  3. MONOCORDIL [Concomitant]
     Indication: CARDIAC PACEMAKER INSERTION
     Dosage: 1 TABLET, DAILY
     Dates: start: 2010
  4. SINVASTACOR [Concomitant]
     Dosage: 1 TABLET, DAILY
     Dates: start: 2010

REACTIONS (5)
  - Cardiac disorder [Unknown]
  - Diabetes mellitus [Not Recovered/Not Resolved]
  - Malaise [Not Recovered/Not Resolved]
  - Bedridden [Not Recovered/Not Resolved]
  - Hypotension [Not Recovered/Not Resolved]
